FAERS Safety Report 9445165 (Version 3)
Quarter: 2013Q4

REPORT INFORMATION
  Report Type: Spontaneous
  Country: JP (occurrence: JP)
  Receive Date: 20130807
  Receipt Date: 20131211
  Transmission Date: 20140711
  Serious: Yes (Hospitalization)
  Sender: FDA-Public Use
  Company Number: JP-VERTEX PHARMACEUTICALS INC-2013-008605

PATIENT
  Age: 66 Year
  Sex: Male

DRUGS (7)
  1. TELAVIC [Suspect]
     Indication: CHRONIC HEPATITIS C
     Dosage: 1500 MG, QD
     Route: 048
     Dates: start: 20130620, end: 20130725
  2. PEGINTRON [Suspect]
     Indication: CHRONIC HEPATITIS C
     Dosage: 100 ?G, QW
     Route: 058
     Dates: start: 20130620, end: 20130718
  3. REBETOL [Suspect]
     Indication: CHRONIC HEPATITIS C
     Dosage: 800 MG, QD
     Route: 048
     Dates: start: 20130620, end: 20130726
  4. LAENNEC [Concomitant]
     Dosage: 4 ML, QW
     Route: 058
     Dates: start: 20130620
  5. PREDNISOLONE [Concomitant]
     Dosage: 10 MG, QD
     Route: 048
     Dates: start: 20130620
  6. REBAMIPIDE [Concomitant]
     Dosage: 300 MG, QD
     Route: 048
     Dates: start: 20130620
  7. MIYA BM [Concomitant]
     Dosage: 2 DF, QD
     Route: 048
     Dates: start: 20130710

REACTIONS (3)
  - Enteritis infectious [Recovered/Resolved]
  - Haemoglobin decreased [Recovered/Resolved]
  - Haemorrhoidal haemorrhage [Recovered/Resolved]
